FAERS Safety Report 12341126 (Version 1)
Quarter: 2016Q2

REPORT INFORMATION
  Report Type: Spontaneous
  Country: BR (occurrence: BR)
  Receive Date: 20160506
  Receipt Date: 20160506
  Transmission Date: 20160815
  Serious: Yes (Other)
  Sender: FDA-Public Use
  Company Number: BR-ABBVIE-16P-020-1622411-00

PATIENT
  Age: 64 Year
  Sex: Female
  Weight: 92 kg

DRUGS (6)
  1. SYNTHROID [Suspect]
     Active Substance: LEVOTHYROXINE SODIUM
     Indication: THYROID DISORDER
     Dosage: 75 MCG; AFTER FASTING
     Route: 048
     Dates: start: 1997, end: 2003
  2. SYNTHROID [Suspect]
     Active Substance: LEVOTHYROXINE SODIUM
     Dosage: 88 MCG; AFTER FASTING
     Route: 048
     Dates: start: 2003, end: 2003
  3. SYNTHROID [Suspect]
     Active Substance: LEVOTHYROXINE SODIUM
     Dosage: PRESCRIBED WITH A TABLET OF 75 MCG AND A TABLET OF 25 MCG
     Route: 065
  4. SYNTHROID [Suspect]
     Active Substance: LEVOTHYROXINE SODIUM
     Indication: WEIGHT INCREASED
     Dosage: 25 MCG; AFTER FASTING
     Route: 048
     Dates: start: 1997, end: 1997
  5. SYNTHROID [Suspect]
     Active Substance: LEVOTHYROXINE SODIUM
     Route: 048
     Dates: start: 2009, end: 2009
  6. SYNTHROID [Suspect]
     Active Substance: LEVOTHYROXINE SODIUM
     Dosage: 125 MCG; AFTER FASTING
     Route: 048

REACTIONS (10)
  - Stomatitis [Not Recovered/Not Resolved]
  - Tremor [Not Recovered/Not Resolved]
  - Urticaria [Recovered/Resolved]
  - Nail discolouration [Not Recovered/Not Resolved]
  - Fatigue [Recovered/Resolved]
  - Therapy cessation [Not Recovered/Not Resolved]
  - Breast cancer [Recovered/Resolved]
  - Asthenia [Not Recovered/Not Resolved]
  - Peripheral swelling [Not Recovered/Not Resolved]
  - Reaction to drug excipients [Recovered/Resolved]

NARRATIVE: CASE EVENT DATE: 2003
